FAERS Safety Report 5160384-6 (Version None)
Quarter: 2006Q4

REPORT INFORMATION
  Report Type: 
  Country: None (occurrence: None)
  Receive Date: 20061121
  Receipt Date: 20061113
  Transmission Date: 20070319
  Serious: Yes (Hospitalization)
  Sender: FDA-Public Use
  Company Number: 163-21880-06110288

PATIENT
  Age: 50 Year
  Sex: Female

DRUGS (10)
  1. REVLIMID [Suspect]
     Indication: MULTIPLE MYELOMA
     Dosage: SEE IMAGE, ORAL
     Route: 048
     Dates: start: 20060930, end: 20061013
  2. REVLIMID [Suspect]
     Indication: MULTIPLE MYELOMA
     Dosage: SEE IMAGE, ORAL
     Route: 048
     Dates: start: 20061101
  3. DEXAMETHASONE TAB [Concomitant]
  4. LISINOPRIL [Concomitant]
  5. AMLODIPINE [Concomitant]
  6. ASPIRIN [Concomitant]
  7. BACTRIM [Concomitant]
  8. ARANESP [Concomitant]
  9. PANTOPRAZOLE SODIUM [Concomitant]
  10. MULTIVITAMIN [Concomitant]

REACTIONS (3)
  - FLUID RETENTION [None]
  - GENERALISED OEDEMA [None]
  - WEIGHT INCREASED [None]
